FAERS Safety Report 4578850-0 (Version None)
Quarter: 2005Q1

REPORT INFORMATION
  Report Type: 
  Country: None (occurrence: None)
  Receive Date: 20050211
  Receipt Date: 20050207
  Transmission Date: 20050727
  Serious: Yes (Death, Hospitalization, Other)
  Sender: FDA-Public Use
  Company Number: FR-BRISTOL-MYERS SQUIBB COMPANY-12857637

PATIENT
  Age: 73 Year
  Sex: Male

DRUGS (2)
  1. VINFLUNINE IV [Suspect]
     Indication: NON-SMALL CELL LUNG CANCER
     Dosage: CYCLE 1: 01-DEC-04/DOSE: 600 MG.  CYCLE 2: 22-DEC-04/DOSE: 600 MG.
     Route: 042
     Dates: start: 20031222
  2. CARBOPLATIN [Suspect]
     Indication: NON-SMALL CELL LUNG CANCER
     Dosage: CYCLE 1: 01-DEC-04/ ADM AS AUC 5.  CYCLE 2: 22-DEC-04/ ADM AUC 5
     Route: 042
     Dates: start: 20031222

REACTIONS (5)
  - DYSPNOEA [None]
  - DYSPNOEA EXACERBATED [None]
  - FEBRILE NEUTROPENIA [None]
  - MYOCARDIAL INFARCTION [None]
  - TROPONIN T INCREASED [None]
